FAERS Safety Report 17029009 (Version 1)
Quarter: 2019Q4

REPORT INFORMATION
  Report Type: Spontaneous
  Country: FR (occurrence: FR)
  Receive Date: 20191114
  Receipt Date: 20191114
  Transmission Date: 20200122
  Serious: Yes (Life-Threatening, Hospitalization, Other)
  Sender: FDA-Public Use
  Company Number: FR-SA-2019SA312685

PATIENT
  Age: 72 Year
  Sex: Female
  Weight: 70 kg

DRUGS (4)
  1. PARACETAMOL [Suspect]
     Active Substance: ACETAMINOPHEN
     Indication: POISONING DELIBERATE
     Dosage: 4 G, TOTAL
     Route: 048
     Dates: start: 20190305, end: 20190305
  2. BROMAZEPAM [Suspect]
     Active Substance: BROMAZEPAM
     Indication: POISONING DELIBERATE
     Dosage: UNK UNK, UNK
     Route: 048
     Dates: start: 20190305, end: 20190305
  3. TRAMADOL HYDROCHLORIDE. [Suspect]
     Active Substance: TRAMADOL HYDROCHLORIDE
     Indication: POISONING DELIBERATE
     Dosage: 3800 MG, TOTAL
     Route: 048
     Dates: start: 20190305, end: 20190305
  4. ZOLPIDEM TARTRATE. [Suspect]
     Active Substance: ZOLPIDEM TARTRATE
     Indication: POISONING DELIBERATE
     Dosage: 40 MG, TOTAL
     Route: 048
     Dates: start: 20190305, end: 20190305

REACTIONS (4)
  - Coma [Recovered/Resolved]
  - Overdose [Unknown]
  - Vasoplegia syndrome [Recovered/Resolved]
  - Vomiting [Recovered/Resolved]

NARRATIVE: CASE EVENT DATE: 20190305
